FAERS Safety Report 7810776-9 (Version None)
Quarter: 2011Q4

REPORT INFORMATION
  Report Type: 
  Country: None (occurrence: None)
  Receive Date: 20111011
  Receipt Date: 20110927
  Transmission Date: 20120403
  Serious: Yes (Hospitalization)
  Sender: FDA-Public Use
  Company Number: 1000024483

PATIENT
  Age: 75 Year
  Sex: Female

DRUGS (9)
  1. ESCITALOPRAM [Suspect]
     Indication: DEPRESSION
     Dosage: (10 MG),ORAL ; 10 TABLETS OF 10 MG TAKEN ONCE AS AN OVERDOSE. (10 MG),ORAL
     Route: 048
     Dates: start: 20110912, end: 20110912
  2. ESCITALOPRAM [Suspect]
     Indication: DEPRESSION
     Dosage: (10 MG),ORAL ; 10 TABLETS OF 10 MG TAKEN ONCE AS AN OVERDOSE. (10 MG),ORAL
     Route: 048
     Dates: start: 20110101, end: 20110911
  3. METHOTREXATE [Concomitant]
  4. ENDOXAN (CYCLOPHOSPHAMIDE) (CYCLOPHOSPHAMIDE) [Concomitant]
  5. DOXORUBICIN HCL [Concomitant]
  6. PARIET (RABEPRAZOLE SODIUM) (TABLETS) (RABEPRAZOLE SODIUM) [Concomitant]
  7. VINCRISTINE [Concomitant]
  8. MABTHERA (RITUXIMAB) (RITUXIMAB) [Concomitant]
  9. CARDIOAPSPIRIN (ACETYLSALICYLIC ACID) (TABLETS) (ACETYLSALICYLIC ACID) [Concomitant]

REACTIONS (5)
  - DEPRESSION [None]
  - FEELING JITTERY [None]
  - OVERDOSE [None]
  - LEUKOPENIA [None]
  - LYMPHOMA [None]
